FAERS Safety Report 18327215 (Version 1)
Quarter: 2020Q3

REPORT INFORMATION
  Report Type: Spontaneous
  Country: US (occurrence: US)
  Receive Date: 20200930
  Receipt Date: 20200930
  Transmission Date: 20201103
  Serious: Yes (Other)
  Sender: FDA-Public Use
  Company Number: US-LUPIN PHARMACEUTICALS INC.-2020-06900

PATIENT
  Age: 41 Year
  Sex: Female
  Weight: 107 kg

DRUGS (11)
  1. AMBRISENTAN [Suspect]
     Active Substance: AMBRISENTAN
     Indication: PULMONARY ARTERIAL HYPERTENSION
     Dosage: 10 MILLIGRAM, QD
     Route: 065
  2. SELEXIPAG [Suspect]
     Active Substance: SELEXIPAG
     Dosage: 800 MICROGRAM, BID, SPLIT BETWEEN THE MORNING AND EVENING DOSES
     Route: 065
  3. TORSEMIDE. [Concomitant]
     Active Substance: TORSEMIDE
     Indication: PRODUCT USED FOR UNKNOWN INDICATION
     Dosage: 40 MILLIGRAM, QD
     Route: 065
  4. DIGOXIN. [Concomitant]
     Active Substance: DIGOXIN
     Indication: PRODUCT USED FOR UNKNOWN INDICATION
     Dosage: 250 MICROGRAM, QD
     Route: 065
  5. SELEXIPAG [Suspect]
     Active Substance: SELEXIPAG
     Dosage: 1200 MICROGRAM, BID, ON THE DAY OF ADMISSION
     Route: 065
  6. SELEXIPAG [Suspect]
     Active Substance: SELEXIPAG
     Dosage: 400 MICROGRAM, BID
     Route: 065
  7. SPIRONOLACTONE. [Concomitant]
     Active Substance: SPIRONOLACTONE
     Indication: PRODUCT USED FOR UNKNOWN INDICATION
     Dosage: 25 MILLIGRAM, QD
     Route: 065
  8. SELEXIPAG [Suspect]
     Active Substance: SELEXIPAG
     Dosage: 200 MICROGRAM, BID, (24 H BEFORE STOPPING)
     Route: 065
  9. SILDENAFIL. [Suspect]
     Active Substance: SILDENAFIL
     Indication: PULMONARY ARTERIAL HYPERTENSION
     Dosage: 20 MILLIGRAM, TID
     Route: 065
  10. SELEXIPAG [Suspect]
     Active Substance: SELEXIPAG
     Indication: PULMONARY ARTERIAL HYPERTENSION
     Dosage: 1600 MICROGRAM, BID
     Route: 065
  11. APIXABAN [Concomitant]
     Active Substance: APIXABAN
     Indication: PRODUCT USED FOR UNKNOWN INDICATION
     Dosage: 5 MILLIGRAM, BID
     Route: 065

REACTIONS (3)
  - Product use issue [Unknown]
  - Loss of personal independence in daily activities [Unknown]
  - Off label use [Unknown]
